FAERS Safety Report 5938185-8 (Version None)
Quarter: 2008Q4

REPORT INFORMATION
  Report Type: 
  Country: None (occurrence: None)
  Receive Date: 20081031
  Receipt Date: 20081020
  Transmission Date: 20090506
  Serious: Yes (Hospitalization)
  Sender: FDA-Public Use
  Company Number: FR-PFIZER INC-2008088837

PATIENT
  Sex: Female

DRUGS (8)
  1. TRIFLUCAN [Suspect]
     Route: 048
     Dates: start: 20080912, end: 20080915
  2. TAVANIC [Suspect]
     Indication: BRONCHITIS
     Route: 048
     Dates: start: 20080910, end: 20080915
  3. AMLOD [Concomitant]
     Route: 048
  4. LASIX [Concomitant]
     Route: 048
  5. KARDEGIC [Concomitant]
     Route: 048
  6. CORVASAL [Concomitant]
     Route: 048
  7. DIFFU K [Concomitant]
     Route: 048
  8. BECOTIDE [Concomitant]
     Route: 055

REACTIONS (3)
  - CONFUSIONAL STATE [None]
  - HALLUCINATION [None]
  - STATUS EPILEPTICUS [None]
